FAERS Safety Report 19970591 (Version 1)
Quarter: 2021Q4

REPORT INFORMATION
  Report Type: Report from Study
  Country: None (occurrence: FR)
  Receive Date: 20211020
  Receipt Date: 20211020
  Transmission Date: 20220303
  Serious: Yes (Other)
  Sender: FDA-Public Use
  Company Number: FR-ABBVIE-21K-056-4125362-00

PATIENT
  Age: 70 Year
  Sex: Male

DRUGS (3)
  1. CARBIDOPA\LEVODOPA [Suspect]
     Active Substance: CARBIDOPA\LEVODOPA
     Indication: Parkinson^s disease
     Route: 050
     Dates: start: 201811, end: 2021
  2. CARBIDOPA\LEVODOPA [Suspect]
     Active Substance: CARBIDOPA\LEVODOPA
     Dosage: 8.8 ML/H CONTINUOUS DOSE IN THE AFTERNOON
     Route: 050
     Dates: start: 2021
  3. CLOZAPINE [Concomitant]
     Active Substance: CLOZAPINE
     Indication: Hallucination
     Route: 048

REACTIONS (4)
  - Enteral nutrition [Unknown]
  - Skin ulcer [Unknown]
  - Hallucination [Unknown]
  - Impaired healing [Unknown]

NARRATIVE: CASE EVENT DATE: 20211001
